FAERS Safety Report 7982563 (Version 2)
Quarter: 2018Q4

REPORT INFORMATION
  Report Type: Report from Study
  Country: JP (occurrence: JP)
  Receive Date: 20110609
  Receipt Date: 20181227
  Transmission Date: 20190205
  Serious: Yes (Death, Other)
  Sender: FDA-Public Use
  Company Number: PHHY2009JP06668

PATIENT
  Age: 77 Year
  Sex: Male
  Weight: 61 kg

DRUGS (13)
  1. FLAVERIC [Concomitant]
     Active Substance: BENPROPERINE PHOSPHATE
     Dosage: 60 MG
     Route: 048
     Dates: start: 20080630, end: 20080701
  2. FLOMOX [Concomitant]
     Active Substance: CEFCAPENE PIVOXIL HYDROCHLORIDE HYDRATE
     Dosage: 300 MG
     Route: 048
     Dates: start: 20080630
  3. LOXONIN [Concomitant]
     Active Substance: LOXOPROFEN SODIUM
     Dosage: 180 MG
     Route: 048
     Dates: start: 20080630, end: 20080701
  4. DIOVAN [Suspect]
     Active Substance: VALSARTAN
     Dosage: 80 MG, QD
     Route: 048
     Dates: start: 20080408, end: 20080506
  5. NEOLAMIN 3B INJ. [Concomitant]
     Route: 042
     Dates: start: 20080630, end: 20080630
  6. ROCEPHIN [Concomitant]
     Active Substance: CEFTRIAXONE SODIUM
     Dosage: 1 G
     Dates: start: 20080630, end: 20080630
  7. DIOVAN [Suspect]
     Active Substance: VALSARTAN
     Dosage: 40 MG, QD
     Route: 048
     Dates: start: 20080325, end: 20080407
  8. CRAVIT [Concomitant]
     Active Substance: LEVOFLOXACIN
     Dosage: 300 MG
     Route: 048
     Dates: start: 20080924, end: 20080926
  9. DIOVAN [Suspect]
     Active Substance: VALSARTAN
     Dosage: 40 MG, QD
     Route: 048
     Dates: start: 20080507, end: 20080926
  10. KAKKON-TO [Concomitant]
     Active Substance: HERBS\ROOTS
     Dosage: 7.5 MG
     Route: 048
     Dates: start: 20080919, end: 20080923
  11. KYLIT [Concomitant]
     Dosage: 300 ML
     Dates: start: 20080630, end: 20080630
  12. FLOMOX [Concomitant]
     Active Substance: CEFCAPENE PIVOXIL HYDROCHLORIDE HYDRATE
     Dosage: 300 MG, UNK
     Route: 048
     Dates: end: 20080924
  13. METHYCOBAL [Concomitant]
     Active Substance: METHYLCOBALAMIN
     Dosage: 1500 UG
     Route: 048
     Dates: start: 20080912, end: 20080923

REACTIONS (6)
  - Cough [Fatal]
  - Neuropathy peripheral [Recovering/Resolving]
  - Lung neoplasm malignant [Fatal]
  - Bronchitis [Fatal]
  - Chest pain [Fatal]
  - Metastases to central nervous system [Unknown]

NARRATIVE: CASE EVENT DATE: 20080619
